FAERS Safety Report 25611173 (Version 1)
Quarter: 2025Q3

REPORT INFORMATION
  Report Type: Spontaneous
  Country: CA (occurrence: CA)
  Receive Date: 20250728
  Receipt Date: 20250728
  Transmission Date: 20251020
  Serious: Yes (Hospitalization)
  Sender: FRESENIUS KABI
  Company Number: CA-FreseniusKabi-FK202510254

PATIENT
  Age: 48 Year
  Sex: Female

DRUGS (1)
  1. ACYCLOVIR [Suspect]
     Active Substance: ACYCLOVIR
     Indication: Encephalitis
     Route: 042

REACTIONS (2)
  - Acute kidney injury [Recovered/Resolved]
  - Sinus tachycardia [Recovered/Resolved]
